FAERS Safety Report 9192987 (Version 2)
Quarter: 2013Q2

REPORT INFORMATION
  Report Type: Report from Study
  Country: JP (occurrence: JP)
  Receive Date: 20130327
  Receipt Date: 20130606
  Transmission Date: 20140414
  Serious: Yes (Other)
  Sender: FDA-Public Use
  Company Number: PHHY2013JP029598

PATIENT
  Age: 32 Year
  Sex: Male

DRUGS (3)
  1. AFINITOR [Suspect]
     Indication: RENAL CELL CARCINOMA
     Dosage: 10 MG/DAY
     Route: 048
     Dates: start: 20110517, end: 20110612
  2. DECADRON [Concomitant]
     Indication: RENAL CELL CARCINOMA
     Dosage: 1 MG
     Route: 048
     Dates: start: 20110511, end: 20110615
  3. CELECOX [Concomitant]
     Indication: RENAL CELL CARCINOMA
     Dosage: 200 MG
     Route: 048
     Dates: start: 20110523, end: 20110615

REACTIONS (3)
  - C-reactive protein increased [Recovered/Resolved]
  - Blood alkaline phosphatase increased [Recovered/Resolved]
  - Gamma-glutamyltransferase increased [Recovered/Resolved]
